FAERS Safety Report 25685339 (Version 1)
Quarter: 2025Q3

REPORT INFORMATION
  Report Type: Spontaneous
  Country: CA (occurrence: CA)
  Receive Date: 20250815
  Receipt Date: 20250815
  Transmission Date: 20251021
  Serious: Yes (Life-Threatening, Other)
  Sender: MALLINCKRODT
  Company Number: CA-MALLINCKRODT-MNK202504948

PATIENT
  Age: 0 Year
  Sex: Male
  Weight: 1 kg

DRUGS (8)
  1. NITRIC OXIDE [Suspect]
     Active Substance: NITRIC OXIDE
     Indication: Newborn persistent pulmonary hypertension
     Route: 055
     Dates: start: 20250709, end: 20250709
  2. NITRIC OXIDE [Suspect]
     Active Substance: NITRIC OXIDE
     Indication: Hypoxia
  3. BLES [Concomitant]
  4. AMPICILLIN [Concomitant]
     Active Substance: AMPICILLIN
  5. TOBRAMYCIN [Concomitant]
     Active Substance: TOBRAMYCIN
  6. VITAMIN K [Concomitant]
     Active Substance: PHYTONADIONE
  7. CAFFEINE [Concomitant]
     Active Substance: CAFFEINE
  8. DEXTROSE [Concomitant]
     Active Substance: DEXTROSE MONOHYDRATE

REACTIONS (3)
  - Oxygen saturation decreased [Recovered/Resolved]
  - Hypotension [Unknown]
  - Product use issue [Unknown]

NARRATIVE: CASE EVENT DATE: 20250709
